FAERS Safety Report 16302602 (Version 3)
Quarter: 2019Q2

REPORT INFORMATION
  Report Type: Spontaneous
  Country: IT (occurrence: IT)
  Receive Date: 20190513
  Receipt Date: 20190530
  Transmission Date: 20190711
  Serious: Yes (Other)
  Sender: FDA-Public Use
  Company Number: IT-LUPIN PHARMACEUTICALS INC.-2019-02893

PATIENT
  Age: 31 Year
  Sex: Female

DRUGS (3)
  1. ACETYLSALICYLIC ACID [Concomitant]
     Active Substance: ASPIRIN
     Indication: THROMBOSIS PROPHYLAXIS
     Dosage: 100 MILLIGRAM, QD
     Route: 065
  2. DESOGESTREL AND ETHINYL ESTRADIOL [Suspect]
     Active Substance: DESOGESTREL\ETHINYL ESTRADIOL
     Indication: HYPOGONADISM FEMALE
     Dosage: 150/20 MICROGRAM, QD
     Route: 065
  3. MEDROXYPROGESTERONE ACETATE. [Suspect]
     Active Substance: MEDROXYPROGESTERONE ACETATE
     Indication: HYPOGONADISM FEMALE
     Dosage: 5 MILLIGRAM, QD
     Route: 065

REACTIONS (4)
  - Diabetes mellitus [Unknown]
  - Hemiparesis [Unknown]
  - Off label use [Unknown]
  - Cerebrovascular accident [Unknown]
